FAERS Safety Report 4585937-5 (Version None)
Quarter: 2005Q1

REPORT INFORMATION
  Report Type: 
  Country: None (occurrence: None)
  Receive Date: 20050214
  Receipt Date: 20050201
  Transmission Date: 20050727
  Serious: Yes (Disabling)
  Sender: FDA-Public Use
  Company Number: GBWYE334512JAN05

PATIENT
  Age: 40 Year
  Sex: Female

DRUGS (7)
  1. EFFEXOR [Suspect]
     Indication: DEPRESSION
     Dosage: 75 MG 2X PER 1 DAY, ORAL
     Route: 048
     Dates: start: 20020101
  2. EFFEXOR [Suspect]
     Dosage: 37.5 MG 2X PER 1 DAY,
  3. EFFEXOR [Suspect]
     Dosage: 37.5 MG 1X PER 1 DAY
  4. EFFEXOR [Suspect]
     Dosage: 18.75 MG 1X PER 1 DAY, ORAL
     Route: 048
  5. ACETAMINOPHEN [Concomitant]
  6. SENNA [Concomitant]
  7. DULCOLAX [Concomitant]

REACTIONS (6)
  - DRUG WITHDRAWAL SYNDROME [None]
  - DYSAESTHESIA [None]
  - FATIGUE [None]
  - MALAISE [None]
  - MENTAL IMPAIRMENT [None]
  - VERTIGO [None]
